FAERS Safety Report 4721254-8 (Version None)
Quarter: 2005Q3

REPORT INFORMATION
  Report Type: 
  Country: None (occurrence: None)
  Receive Date: 20050720
  Receipt Date: 20050713
  Transmission Date: 20060218
  Serious: Yes (Hospitalization)
  Sender: FDA-Public Use
  Company Number: 2005-07-0475

PATIENT
  Age: 50 Year
  Sex: Female

DRUGS (4)
  1. CLARITIN [Suspect]
     Indication: PRURITUS
     Dosage: 10 MG ORAL
     Route: 048
     Dates: start: 20050608, end: 20050628
  2. FESIN INJECTABLE [Suspect]
  3. TIENAM INJECTABLE (IMIPENEN/CILASTATIN) [Suspect]
  4. EPOETIN BETA INJECTABLE [Suspect]

REACTIONS (1)
  - EOSINOPHIL COUNT INCREASED [None]
